FAERS Safety Report 5805327-4 (Version None)
Quarter: 2008Q3

REPORT INFORMATION
  Report Type: 
  Country: None (occurrence: None)
  Receive Date: 20080709
  Receipt Date: 20080702
  Transmission Date: 20090109
  Serious: Yes (Hospitalization, Other)
  Sender: FDA-Public Use
  Company Number: US-ELI_LILLY_AND_COMPANY-US200807000697

PATIENT
  Sex: Female

DRUGS (3)
  1. HUMULIN 70/30 [Suspect]
     Indication: DIABETES MELLITUS
     Dosage: UNK, UNK
     Dates: start: 20050101
  2. HUMULIN 70/30 [Suspect]
  3. HUMULIN 70/30 [Suspect]

REACTIONS (9)
  - BLOOD GLUCOSE INCREASED [None]
  - BREAST PAIN [None]
  - BREAST PROSTHESIS IMPLANTATION [None]
  - BREAST PROSTHESIS REMOVAL [None]
  - DRUG INEFFECTIVE [None]
  - DYSPNOEA [None]
  - MASTECTOMY [None]
  - PROCEDURAL PAIN [None]
  - SCAR EXCISION [None]
